FAERS Safety Report 7368908-5 (Version None)
Quarter: 2011Q1

REPORT INFORMATION
  Report Type: 
  Country: None (occurrence: None)
  Receive Date: 20110323
  Receipt Date: 20110224
  Transmission Date: 20110831
  Serious: Yes (Other)
  Sender: FDA-Public Use
  Company Number: US-BAYER-201035460NA

PATIENT
  Sex: Female
  Weight: 65.306 kg

DRUGS (6)
  1. YAZ [Suspect]
     Indication: CONTRACEPTION
     Dosage: UNK
     Dates: start: 20050101, end: 20071101
  2. YASMIN [Suspect]
     Indication: CONTRACEPTION
     Dosage: UNK
     Dates: start: 20050101, end: 20071101
  3. ZANTAC [Concomitant]
     Route: 048
  4. OCELLA [Suspect]
     Indication: PRODUCT USED FOR UNKNOWN INDICATION
     Dates: start: 20050101
  5. AMOXICILLIN [Concomitant]
     Dosage: 250 MG, UNK
     Route: 048
     Dates: start: 20050928
  6. IBUPROFEN [Concomitant]
     Dosage: 600 MG, UNK
     Route: 048
     Dates: start: 20050803

REACTIONS (2)
  - CHOLELITHIASIS [None]
  - GALLBLADDER DISORDER [None]
